FAERS Safety Report 16271266 (Version 2)
Quarter: 2019Q2

REPORT INFORMATION
  Report Type: Report from Study
  Country: ZA (occurrence: ZA)
  Receive Date: 20190503
  Receipt Date: 20190513
  Transmission Date: 20190711
  Serious: Yes (Death)
  Sender: FDA-Public Use
  Company Number: ZA-ASTRAZENECA-2019SE68054

PATIENT
  Age: 1 Year
  Sex: Male

DRUGS (2)
  1. SYNAGIS [Suspect]
     Active Substance: PALIVIZUMAB
     Indication: PREMATURE BABY
     Dosage: 150 MG
     Route: 030
     Dates: start: 201901, end: 20190429
  2. SYNAGIS [Suspect]
     Active Substance: PALIVIZUMAB
     Indication: LUNG DISORDER
     Dosage: 150 MG
     Route: 030
     Dates: start: 201901, end: 20190429

REACTIONS (1)
  - Device malfunction [Fatal]

NARRATIVE: CASE EVENT DATE: 2019
